FAERS Safety Report 15244169 (Version 1)
Quarter: 2018Q3

REPORT INFORMATION
  Report Type: Spontaneous
  Country: US (occurrence: US)
  Receive Date: 20180806
  Receipt Date: 20180806
  Transmission Date: 20181010
  Serious: Yes (Other)
  Sender: FDA-Public Use
  Company Number: US-PFIZER INC-2018313552

PATIENT
  Age: 61 Year
  Sex: Female
  Weight: 63.96 kg

DRUGS (2)
  1. GABAPENTIN. [Suspect]
     Active Substance: GABAPENTIN
     Indication: SEIZURE
     Dosage: 300 MG, UNK
     Dates: start: 20131013
  2. KEPPRA [Concomitant]
     Active Substance: LEVETIRACETAM
     Indication: SEIZURE

REACTIONS (3)
  - Depression [Unknown]
  - Drug intolerance [Unknown]
  - Suicidal behaviour [Unknown]
